FAERS Safety Report 17041628 (Version 1)
Quarter: 2019Q4

REPORT INFORMATION
  Report Type: Report from Study
  Country: DE (occurrence: DE)
  Receive Date: 20191118
  Receipt Date: 20191118
  Transmission Date: 20200122
  Serious: Yes (Other)
  Sender: FDA-Public Use
  Company Number: DE-ROCHE-2468971

PATIENT
  Age: 78 Year
  Sex: Female
  Weight: 60.5 kg

DRUGS (3)
  1. BEVACIZUMAB. [Suspect]
     Active Substance: BEVACIZUMAB
     Indication: OVARIAN CANCER
     Dosage: LAST DOSE PRIOR TO SERIOUS ADVERSE EVENT (SAE) WAS GIVEN ON 29/OCT/2019
     Route: 042
     Dates: start: 20190904, end: 20191029
  2. ATEZOLIZUMAB. [Suspect]
     Active Substance: ATEZOLIZUMAB
     Indication: OVARIAN CANCER
     Dosage: LAST DOSE PRIOR TO SERIOUS ADVERSE EVENT (SAE) WAS GIVEN ON 29/OCT/2019
     Route: 042
     Dates: start: 20190904, end: 20191029
  3. CAELYX [Suspect]
     Active Substance: DOXORUBICIN HYDROCHLORIDE
     Indication: OVARIAN CANCER
     Dosage: LAST DOSE PRIOR TO SERIOUS ADVERSE EVENT (SAE) WAS GIVEN ON 29/OCT/2019
     Route: 042
     Dates: start: 20190904, end: 20191029

REACTIONS (1)
  - Thyroiditis [Not Recovered/Not Resolved]

NARRATIVE: CASE EVENT DATE: 20191106
